FAERS Safety Report 17855218 (Version 1)
Quarter: 2020Q2

REPORT INFORMATION
  Report Type: Spontaneous
  Country: US (occurrence: US)
  Receive Date: 20200602
  Receipt Date: 20200602
  Transmission Date: 20200714
  Serious: Yes (Hospitalization)
  Sender: FDA-Public Use
  Company Number: None

PATIENT
  Sex: Female

DRUGS (11)
  1. KLOR-CON [Concomitant]
     Active Substance: POTASSIUM CHLORIDE
  2. TYLENOL [Concomitant]
     Active Substance: ACETAMINOPHEN
  3. MAGNESIUM [Concomitant]
     Active Substance: MAGNESIUM
  4. WARFARIN [Concomitant]
     Active Substance: WARFARIN
  5. FLONASE ALGY SPRAY [Concomitant]
  6. FUROSEMIDE. [Concomitant]
     Active Substance: FUROSEMIDE
  7. SILDENAFIL. [Concomitant]
     Active Substance: SILDENAFIL
  8. CARVEDILOL. [Concomitant]
     Active Substance: CARVEDILOL
  9. SILDENAFIL 20MG [Suspect]
     Active Substance: SILDENAFIL
     Indication: PULMONARY ARTERIAL HYPERTENSION
     Route: 048
     Dates: start: 20190605
  10. IRON [Concomitant]
     Active Substance: IRON
  11. LEVOTHYROXINE. [Concomitant]
     Active Substance: LEVOTHYROXINE

REACTIONS (1)
  - Sepsis [None]
